FAERS Safety Report 11847127 (Version 1)
Quarter: 2015Q4

REPORT INFORMATION
  Report Type: Spontaneous
  Country: US (occurrence: US)
  Receive Date: 20151217
  Receipt Date: 20151217
  Transmission Date: 20160305
  Serious: No
  Sender: FDA-Public Use
  Company Number: US-ROCHE-312248

PATIENT
  Age: 48 Year
  Sex: Female

DRUGS (1)
  1. TAMIFLU [Suspect]
     Active Substance: OSELTAMIVIR PHOSPHATE
     Indication: INFLUENZA
     Route: 048
     Dates: start: 20020422, end: 20020423

REACTIONS (5)
  - Dyspnoea [Recovering/Resolving]
  - Erythema [Recovering/Resolving]
  - Hypersensitivity [Recovering/Resolving]
  - Palpitations [Unknown]
  - Rash [Unknown]

NARRATIVE: CASE EVENT DATE: 20020422
